FAERS Safety Report 12554540 (Version 1)
Quarter: 2016Q3

REPORT INFORMATION
  Report Type: Report from Study
  Country: PT (occurrence: PT)
  Receive Date: 20160713
  Receipt Date: 20160713
  Transmission Date: 20161109
  Serious: Yes (Hospitalization)
  Sender: FDA-Public Use
  Company Number: PHHO2016PT009882

PATIENT
  Age: 63 Year
  Sex: Female
  Weight: 50.6 kg

DRUGS (2)
  1. NO TREATMENT RECEIVED [Suspect]
     Active Substance: UNSPECIFIED INGREDIENT
     Indication: RENAL TRANSPLANT
     Dosage: NO TREATMENT
     Route: 065
  2. TACROLIMUS. [Suspect]
     Active Substance: TACROLIMUS
     Indication: RENAL TRANSPLANT
     Dosage: 2.5 MG, UNK
     Route: 065
     Dates: start: 20151008

REACTIONS (1)
  - Lymphocele [Recovered/Resolved]

NARRATIVE: CASE EVENT DATE: 20160614
